FAERS Safety Report 10063948 (Version 1)
Quarter: 2014Q2

REPORT INFORMATION
  Report Type: Spontaneous
  Country: US (occurrence: US)
  Receive Date: 20140408
  Receipt Date: 20140408
  Transmission Date: 20141212
  Serious: No
  Sender: FDA-Public Use
  Company Number: US-BIOGENIDEC-2014BI032375

PATIENT
  Age: 59 Year
  Sex: Female

DRUGS (13)
  1. AVONEX [Suspect]
     Indication: MULTIPLE SCLEROSIS
     Route: 030
     Dates: start: 20130226
  2. AMANTADINE HCL [Concomitant]
  3. AMPYRA [Concomitant]
  4. BACLOFEN [Concomitant]
  5. BUSPIRONE HCL [Concomitant]
  6. OXYBUTYNIN CHLORIDE [Concomitant]
  7. TOLTERODINE TARTRATE [Concomitant]
  8. TYLENOL [Concomitant]
  9. VALTREX [Concomitant]
  10. WARFARIN SODIUM [Concomitant]
  11. ZIPRASIDONE HCL [Concomitant]
  12. ZOLINZA [Concomitant]
  13. ZOLOFT [Concomitant]

REACTIONS (1)
  - Herpes zoster [Unknown]
